FAERS Safety Report 4334737-X (Version None)
Quarter: 2004Q2

REPORT INFORMATION
  Report Type: 
  Country: None (occurrence: None)
  Receive Date: 20040405
  Receipt Date: 20040323
  Transmission Date: 20050107
  Serious: Yes (Other)
  Sender: FDA-Public Use
  Company Number: US-JNJFOC-20040205603

PATIENT
  Age: 13 Year
  Sex: Female
  Weight: 43.9 kg

DRUGS (6)
  1. REMICADE [Suspect]
     Indication: CROHN'S DISEASE
     Dosage: 300 MG, INTRAVENOUS
     Route: 042
  2. ACIPHEX [Concomitant]
  3. CIPRO [Concomitant]
  4. PENTASA [Concomitant]
  5. ENTACORT (ECONACORT) [Concomitant]
  6. AMITRIPTYLINE HCL [Concomitant]

REACTIONS (8)
  - ANTINUCLEAR ANTIBODY POSITIVE [None]
  - ARTHRITIS ENTEROPATHIC [None]
  - BLOOD PRESSURE FLUCTUATION [None]
  - DRUG INEFFECTIVE [None]
  - HYPERSENSITIVITY [None]
  - MENSTRUATION IRREGULAR [None]
  - TACHYCARDIA [None]
  - THERAPEUTIC RESPONSE DECREASED [None]
